FAERS Safety Report 7781534-9 (Version None)
Quarter: 2011Q3

REPORT INFORMATION
  Report Type: 
  Country: None (occurrence: None)
  Receive Date: 20110927
  Receipt Date: 20110914
  Transmission Date: 20111222
  Serious: No
  Sender: FDA-Public Use
  Company Number: US-B.I. PHARMACEUTICALS,INC./RIDGEFIELD-2011-BP-22219BP

PATIENT
  Sex: Female

DRUGS (8)
  1. POTASSIUM [Concomitant]
     Indication: BLOOD POTASSIUM DECREASED
     Dates: start: 20100101
  2. CALCIUM CARBONATE [Concomitant]
     Indication: BLOOD CALCIUM DECREASED
     Dates: start: 20110101
  3. LOSARTAN POTASSIUM [Concomitant]
     Indication: HYPERTENSION
     Dates: start: 20100101
  4. LORATADINE [Concomitant]
     Indication: HYPERSENSITIVITY
     Dates: start: 20110701
  5. AMLODIPINE [Concomitant]
     Indication: HYPERTENSION
     Dates: start: 20110101
  6. PRADAXA [Suspect]
     Indication: ATRIAL FIBRILLATION
     Dosage: 300 MG
     Route: 048
     Dates: start: 20110913
  7. METOPROLOL TARTRATE [Concomitant]
     Indication: HYPERTENSION
     Dates: start: 20100101
  8. VITAMIN D [Concomitant]
     Indication: VITAMIN D DECREASED
     Dates: start: 20110301

REACTIONS (1)
  - ABDOMINAL DISTENSION [None]
